FAERS Safety Report 4417507-3 (Version None)
Quarter: 2004Q3

REPORT INFORMATION
  Report Type: 
  Country: None (occurrence: None)
  Receive Date: 20040804
  Receipt Date: 20040712
  Transmission Date: 20050211
  Serious: Yes (Other)
  Sender: FDA-Public Use
  Company Number: 2004046564

PATIENT
  Age: 60 Year
  Sex: Female
  Weight: 117.028 kg

DRUGS (1)
  1. BEN-GAY ULTRA (CAMPHOR, MENTHOL, METHYL SALICYLATE) [Suspect]
     Indication: PAIN
     Dosage: SMALL AMOUNT BID-QD,TOPICAL
     Route: 061
     Dates: start: 20040701, end: 20040706

REACTIONS (3)
  - BRONCHITIS [None]
  - PHARYNGITIS STREPTOCOCCAL [None]
  - RASH ERYTHEMATOUS [None]
